FAERS Safety Report 23435312 (Version 1)
Quarter: 2024Q1

REPORT INFORMATION
  Report Type: Report from Study
  Country: CA (occurrence: CA)
  Receive Date: 20240123
  Receipt Date: 20240123
  Transmission Date: 20240410
  Serious: Yes (Other)
  Sender: FDA-Public Use
  Company Number: CA-CELLTRION INC.-2024CA001248

PATIENT

DRUGS (11)
  1. RITUXIMAB [Suspect]
     Active Substance: RITUXIMAB
     Indication: Rheumatoid arthritis
     Route: 041
  2. ACTEMRA [Suspect]
     Active Substance: TOCILIZUMAB
     Indication: Rheumatoid arthritis
     Dosage: 162.0 MILLIGRAM, 1 EVERY 2 WEEKS
     Route: 058
  3. ETANERCEPT [Suspect]
     Active Substance: ETANERCEPT
     Indication: Rheumatoid arthritis
     Route: 065
  4. KEVZARA [Suspect]
     Active Substance: SARILUMAB
     Indication: Rheumatoid arthritis
     Route: 065
  5. SULFASALAZINE [Suspect]
     Active Substance: SULFASALAZINE
     Indication: Rheumatoid arthritis
     Route: 065
  6. LORAZEPAM [Concomitant]
     Active Substance: LORAZEPAM
     Route: 065
  7. NORTRIPTYLINE HYDROCHLORIDE [Concomitant]
     Active Substance: NORTRIPTYLINE HYDROCHLORIDE
  8. PREDNISONE [Concomitant]
     Active Substance: PREDNISONE
  9. RINVOQ [Concomitant]
     Active Substance: UPADACITINIB
  10. DULOXETINE [Concomitant]
     Active Substance: DULOXETINE
     Route: 065
  11. TYLENOL [Concomitant]
     Active Substance: ACETAMINOPHEN

REACTIONS (21)
  - Drug intolerance [Unknown]
  - Enthesopathy [Unknown]
  - Fascial operation [Unknown]
  - Haemorrhoids [Unknown]
  - Inflammatory pain [Unknown]
  - Joint noise [Unknown]
  - Joint swelling [Unknown]
  - Musculoskeletal stiffness [Unknown]
  - Pulmonary mass [Unknown]
  - Synovial cyst [Unknown]
  - Synovitis [Unknown]
  - Tendon disorder [Unknown]
  - Arthralgia [Unknown]
  - Bursitis [Unknown]
  - Drug hypersensitivity [Unknown]
  - Fournier^s gangrene [Unknown]
  - Lymphadenopathy [Unknown]
  - Necrotising fasciitis [Unknown]
  - Osteoarthritis [Unknown]
  - Swelling face [Unknown]
  - Drug ineffective [Unknown]
